FAERS Safety Report 9735850 (Version 2)
Quarter: 2013Q4

REPORT INFORMATION
  Report Type: Spontaneous
  Country: US (occurrence: US)
  Receive Date: 20131206
  Receipt Date: 20131206
  Transmission Date: 20140711
  Serious: No
  Sender: FDA-Public Use
  Company Number: US-GILEAD-2009-0024160

PATIENT
  Age: 84 Year
  Sex: Female
  Weight: 47.17 kg

DRUGS (11)
  1. LETAIRIS [Suspect]
     Indication: PULMONARY ARTERIAL HYPERTENSION
     Route: 048
     Dates: start: 20090722, end: 20090813
  2. QVAR [Concomitant]
     Indication: CHRONIC OBSTRUCTIVE PULMONARY DISEASE
     Dates: start: 20090122
  3. XOPENEX HFA [Concomitant]
     Indication: CHRONIC OBSTRUCTIVE PULMONARY DISEASE
     Dates: start: 200701
  4. SYNTHROID [Concomitant]
     Indication: HYPOTHYROIDISM
  5. MIACALCIN [Concomitant]
     Indication: HYPOCALCAEMIA
  6. PREDNISONE [Concomitant]
  7. CYANOCOBALANUB [Concomitant]
  8. SPIRIVA [Concomitant]
  9. VITAMIN D [Concomitant]
  10. ASPIRIN [Concomitant]
  11. RECLAST [Concomitant]

REACTIONS (1)
  - Oedema peripheral [Recovering/Resolving]
